FAERS Safety Report 5224413-3 (Version None)
Quarter: 2007Q1

REPORT INFORMATION
  Report Type: 
  Country: None (occurrence: None)
  Receive Date: 20070130
  Receipt Date: 20070122
  Transmission Date: 20070707
  Serious: Yes (Hospitalization)
  Sender: FDA-Public Use
  Company Number: GB-PFIZER INC-2006117367

PATIENT
  Age: 78 Year
  Sex: Male

DRUGS (8)
  1. SPIRONOLACTONE [Suspect]
     Route: 048
  2. LISINOPRIL [Suspect]
     Indication: HYPERTENSION
     Route: 048
  3. DIGOXIN [Suspect]
     Route: 048
  4. FUROSEMIDE [Suspect]
     Route: 048
  5. DOXAZOSIN MESYLATE [Concomitant]
     Dosage: DAILY DOSE:1MG-FREQ:DAILY
     Route: 048
  6. SERETIDE [Concomitant]
     Route: 055
  7. SIMVASTATIN [Concomitant]
     Dosage: DAILY DOSE:40MG-FREQ:DAILY
     Route: 048
  8. WARFARIN SODIUM [Concomitant]
     Route: 048

REACTIONS (3)
  - BLOOD UREA ABNORMAL [None]
  - ELECTROLYTE IMBALANCE [None]
  - HYPERKALAEMIA [None]
